FAERS Safety Report 5326090-X (Version None)
Quarter: 2007Q2

REPORT INFORMATION
  Report Type: 
  Country: None (occurrence: None)
  Receive Date: 20070510
  Receipt Date: 20070501
  Transmission Date: 20071010
  Serious: Yes (Death, Hospitalization, Other)
  Sender: FDA-Public Use
  Company Number: 163-21880-07031253

PATIENT
  Sex: Male

DRUGS (1)
  1. REVLIMID [Suspect]
     Indication: MULTIPLE MYELOMA
     Dosage: 5-10 MG, EVERY OTHER DAY, ORAL
     Route: 048
     Dates: start: 20060601

REACTIONS (7)
  - CONDITION AGGRAVATED [None]
  - EMPYEMA [None]
  - MULTIPLE MYELOMA [None]
  - PANCYTOPENIA [None]
  - PNEUMONIA [None]
  - PNEUMONITIS [None]
  - SEPSIS [None]
